FAERS Safety Report 5681108-X (Version None)
Quarter: 2008Q1

REPORT INFORMATION
  Report Type: 
  Country: None (occurrence: None)
  Receive Date: 20080325
  Receipt Date: 20080314
  Transmission Date: 20080703
  Serious: Yes (Other)
  Sender: FDA-Public Use
  Company Number: 2008SP005294

PATIENT
  Age: 28 Year
  Sex: Male
  Weight: 93 kg

DRUGS (3)
  1. TEMODAL [Suspect]
     Indication: OLIGODENDROGLIOMA
     Dosage: 75 MG;QD;PO, 200 MG;QD;PO
     Route: 048
     Dates: start: 20071126, end: 20080111
  2. TEMODAL [Suspect]
     Indication: OLIGODENDROGLIOMA
     Dosage: 75 MG;QD;PO, 200 MG;QD;PO
     Route: 048
     Dates: start: 20080130, end: 20080203
  3. PASPERTIN [Concomitant]

REACTIONS (2)
  - EOSINOPHILIA [None]
  - RASH [None]
